FAERS Safety Report 8322305-4 (Version None)
Quarter: 2012Q2

REPORT INFORMATION
  Report Type: 
  Country: None (occurrence: None)
  Receive Date: 20120426
  Receipt Date: 20120411
  Transmission Date: 20120825
  Serious: Yes (Hospitalization)
  Sender: FDA-Public Use
  Company Number: IPC201203-000142

PATIENT
  Age: 49 Year
  Sex: Male
  Weight: 74 kg

DRUGS (5)
  1. LISINOPRIL [Concomitant]
  2. GEMFIBROZIL [Concomitant]
  3. VARDENAFIL HYDROCHLORIDE (LEVITRA) [Concomitant]
  4. METFORMIN HYDROCHLORIDE [Suspect]
     Indication: TYPE 2 DIABETES MELLITUS
     Dosage: 52 GRAMS, ORAL
     Route: 048
  5. GLYBURIDE [Suspect]
     Indication: TYPE 2 DIABETES MELLITUS
     Dosage: 350 MG, ORAL
     Route: 048

REACTIONS (23)
  - OTITIS EXTERNA [None]
  - HYPOTENSION [None]
  - THROMBOCYTOPENIA [None]
  - NECROSIS [None]
  - RESPIRATORY FAILURE [None]
  - OTORRHOEA [None]
  - RENAL FAILURE ACUTE [None]
  - SUICIDE ATTEMPT [None]
  - STREPTOCOCCUS TEST POSITIVE [None]
  - HYPOGLYCAEMIA [None]
  - LACTIC ACIDOSIS [None]
  - HYPERNATRAEMIA [None]
  - NAUSEA [None]
  - DIARRHOEA [None]
  - MULTIPLE DRUG OVERDOSE INTENTIONAL [None]
  - PYREXIA [None]
  - CEREBRAL ISCHAEMIA [None]
  - HYPERGLYCAEMIA [None]
  - STAPHYLOCOCCUS TEST POSITIVE [None]
  - HAEMODIALYSIS [None]
  - LEUKOCYTOSIS [None]
  - DEAFNESS NEUROSENSORY [None]
  - UNRESPONSIVE TO STIMULI [None]
